FAERS Safety Report 8552185-3 (Version None)
Quarter: 2012Q3

REPORT INFORMATION
  Report Type: 
  Country: None (occurrence: None)
  Receive Date: 20120731
  Receipt Date: 20120719
  Transmission Date: 20120928
  Serious: No
  Sender: FDA-Public Use
  Company Number: US-BIOGENIDEC-2012BI026455

PATIENT
  Age: 50 Year
  Sex: Female

DRUGS (2)
  1. AVONEX [Suspect]
     Indication: MULTIPLE SCLEROSIS
     Route: 030
     Dates: start: 20120320
  2. AVONEX [Suspect]
     Route: 030
     Dates: start: 20120711

REACTIONS (5)
  - TREMOR [None]
  - MALAISE [None]
  - MUSCLE TWITCHING [None]
  - HYPOAESTHESIA [None]
  - VIITH NERVE PARALYSIS [None]
